FAERS Safety Report 9451117 (Version 2)
Quarter: 2015Q2

REPORT INFORMATION
  Report Type: Spontaneous
  Country: PH (occurrence: PH)
  Receive Date: 20130809
  Receipt Date: 20150430
  Transmission Date: 20150821
  Serious: Yes (Hospitalization)
  Sender: FDA-Public Use
  Company Number: PHHY2013PH084671

PATIENT
  Age: 55 Year
  Sex: Female

DRUGS (6)
  1. GLIMEPIRIDE. [Concomitant]
     Active Substance: GLIMEPIRIDE
     Indication: DIABETES MELLITUS
     Dosage: 1 MG, QD
     Route: 065
  2. THIAMAZOLE [Suspect]
     Active Substance: METHIMAZOLE
     Indication: BASEDOW^S DISEASE
     Dosage: 40 MG, QD
     Route: 065
  3. PIOGLITAZONE [Concomitant]
     Active Substance: PIOGLITAZONE
     Indication: DIABETES MELLITUS
     Dosage: 15 MG, QD
     Route: 065
  4. CARBIDOPA LEVODOPA [Concomitant]
     Active Substance: CARBIDOPA\LEVODOPA
     Indication: PARKINSON^S DISEASE
     Route: 065
  5. SALMETEROL/FLUTICASONPROPIONAAT [Concomitant]
     Active Substance: SALMETEROL
     Indication: ASTHMA
     Route: 055
  6. TELMISARTAN/HCTZ [Concomitant]
     Active Substance: HYDROCHLOROTHIAZIDE\TELMISARTAN
     Indication: HYPERTENSION
     Dosage: 52.5 MG, QD
     Route: 065

REACTIONS (13)
  - Ecchymosis [Recovering/Resolving]
  - Aplastic anaemia [Recovering/Resolving]
  - Rhonchi [Unknown]
  - Pyrexia [Recovering/Resolving]
  - Oropharyngeal pain [Unknown]
  - Micrococcus infection [Recovering/Resolving]
  - Haemorrhage [Recovering/Resolving]
  - Pancytopenia [Unknown]
  - Pneumonia klebsiella [Recovering/Resolving]
  - Agranulocytosis [Recovering/Resolving]
  - Tachycardia [Unknown]
  - Acinetobacter test positive [Recovering/Resolving]
  - Haemoptysis [Recovering/Resolving]
